FAERS Safety Report 5473384-3 (Version None)
Quarter: 2007Q3

REPORT INFORMATION
  Report Type: 
  Country: None (occurrence: None)
  Receive Date: 20070824
  Receipt Date: 20070521
  Transmission Date: 20080115
  Serious: Yes (Life-Threatening, Hospitalization, Other)
  Sender: FDA-Public Use
  Company Number: WAES 0705USA04026

PATIENT
  Age: 63 Year
  Sex: Female
  Weight: 67.586 kg

DRUGS (7)
  1. VYTORIN [Suspect]
     Indication: DYSLIPIDAEMIA
     Dosage: 10-20 MG/DAILY/PO
     Route: 048
     Dates: start: 20050802, end: 20060418
  2. VYTORIN [Suspect]
     Indication: HYPERLIPIDAEMIA
     Dosage: 10-20 MG/DAILY/PO
     Route: 048
     Dates: start: 20050802, end: 20060418
  3. CELEXA [Concomitant]
  4. DIOVAN [Concomitant]
  5. KLONOPIN [Concomitant]
  6. OXYCONTIN [Concomitant]
  7. TRAZODONE HYDROCHLORIDE [Concomitant]

REACTIONS (4)
  - CHOLECYSTITIS [None]
  - CHOLELITHIASIS [None]
  - HEPATIC ENZYME INCREASED [None]
  - PANCREATITIS [None]
